FAERS Safety Report 6853631-3 (Version None)
Quarter: 2010Q3

REPORT INFORMATION
  Report Type: 
  Country: None (occurrence: None)
  Receive Date: 20100717
  Receipt Date: 20071207
  Transmission Date: 20110219
  Serious: No
  Sender: FDA-Public Use
  Company Number: US-PFIZER INC-2007105639

PATIENT
  Sex: Female
  Weight: 48.1 kg

DRUGS (4)
  1. CHANTIX [Suspect]
     Indication: SMOKING CESSATION THERAPY
     Dates: start: 20071206
  2. ANTIDEPRESSANTS [Concomitant]
     Indication: DEPRESSION
  3. ATIVAN [Concomitant]
     Indication: ANXIETY
  4. IRON [Concomitant]
     Indication: BLOOD IRON DECREASED

REACTIONS (1)
  - PRURITUS [None]
